FAERS Safety Report 16412300 (Version 4)
Quarter: 2019Q4

REPORT INFORMATION
  Report Type: Spontaneous
  Country: JP (occurrence: JP)
  Receive Date: 20190610
  Receipt Date: 20191205
  Transmission Date: 20200122
  Serious: Yes (Hospitalization, Other)
  Sender: FDA-Public Use
  Company Number: PHJP2019JP006440

PATIENT
  Age: 60 Year
  Sex: Male

DRUGS (3)
  1. COSENTYX [Suspect]
     Active Substance: SECUKINUMAB
     Indication: PSORIASIS
     Dosage: 300 MG, UNK
     Route: 058
     Dates: start: 201807, end: 201809
  2. COSENTYX [Suspect]
     Active Substance: SECUKINUMAB
     Dosage: 300 MG, UNK
     Route: 058
     Dates: start: 201902
  3. STELARA [Suspect]
     Active Substance: USTEKINUMAB
     Indication: PRODUCT USED FOR UNKNOWN INDICATION
     Dosage: 45 MG, UNK
     Route: 058
     Dates: end: 201806

REACTIONS (6)
  - Oropharyngeal pain [Unknown]
  - Metastases to lung [Recovering/Resolving]
  - Metastases to lymph nodes [Recovering/Resolving]
  - Rash [Unknown]
  - Hypopharyngeal cancer [Recovering/Resolving]
  - Sensation of foreign body [Unknown]

NARRATIVE: CASE EVENT DATE: 201808
